FAERS Safety Report 10440769 (Version 1)
Quarter: 2014Q3

REPORT INFORMATION
  Report Type: Spontaneous
  Country: US (occurrence: None)
  Receive Date: 20140908
  Receipt Date: 20140908
  Transmission Date: 20150326
  Serious: Yes (Hospitalization)
  Sender: FDA-Public Use
  Company Number: None

PATIENT
  Age: 82 Year
  Sex: Male
  Weight: 79.38 kg

DRUGS (1)
  1. APTIOM [Suspect]
     Active Substance: ESLICARBAZEPINE ACETATE
     Indication: CONVULSION
     Dosage: ONE PILL, ONCE DAILY, TAKEN BY MOUTHY
     Route: 048
     Dates: start: 20140613, end: 20140617

REACTIONS (5)
  - Condition aggravated [None]
  - Amnesia [None]
  - Tremor [None]
  - Convulsion [None]
  - Hypoaesthesia [None]

NARRATIVE: CASE EVENT DATE: 20140617
